FAERS Safety Report 8814896 (Version 4)
Quarter: 2014Q3

REPORT INFORMATION
  Report Type: Spontaneous
  Country: US (occurrence: US)
  Receive Date: 20120928
  Receipt Date: 20140710
  Transmission Date: 20150326
  Serious: Yes (Hospitalization, Other)
  Sender: FDA-Public Use
  Company Number: US-009507513-1209USA010873

PATIENT
  Sex: Female
  Weight: 68.27 kg

DRUGS (3)
  1. FOSAMAX [Suspect]
     Active Substance: ALENDRONATE SODIUM
     Dosage: 35 MG, QW
     Route: 048
     Dates: start: 20010803, end: 200505
  2. HORMONES (UNSPECIFIED) [Concomitant]
     Active Substance: UNSPECIFIED INGREDIENT
     Dosage: UNK
     Dates: start: 1999, end: 2003
  3. FOSAMAX [Suspect]
     Active Substance: ALENDRONATE SODIUM
     Indication: OSTEOPENIA
     Dosage: 5 MG, UNK
     Route: 048
     Dates: start: 19991202, end: 200107

REACTIONS (22)
  - Femur fracture [Recovering/Resolving]
  - Localised infection [Unknown]
  - Arthropod bite [Unknown]
  - Intervertebral disc disorder [Unknown]
  - Osteoarthritis [Unknown]
  - Calcinosis [Unknown]
  - Femur fracture [Recovered/Resolved]
  - Depression [Unknown]
  - Intramedullary rod insertion [Unknown]
  - Hypercholesterolaemia [Unknown]
  - Nausea [Unknown]
  - Infection [Unknown]
  - Anaemia postoperative [Unknown]
  - Gastrooesophageal reflux disease [Unknown]
  - Osteoporosis [Unknown]
  - Tonsillectomy [Unknown]
  - Haemorrhoid operation [Unknown]
  - Spinal osteoarthritis [Unknown]
  - Foreign body [Unknown]
  - Hypertension [Unknown]
  - Anxiety [Unknown]
  - Vomiting [Unknown]

NARRATIVE: CASE EVENT DATE: 2002
